FAERS Safety Report 6438972-6 (Version None)
Quarter: 2009Q4

REPORT INFORMATION
  Report Type: 
  Country: None (occurrence: None)
  Receive Date: 20091111
  Receipt Date: 20091111
  Transmission Date: 20100525
  Serious: Yes (Life-Threatening, Hospitalization)
  Sender: FDA-Public Use
  Company Number: None

PATIENT
  Age: 27 Year
  Sex: Female
  Weight: 71.2147 kg

DRUGS (1)
  1. LEXAPRO [Suspect]
     Indication: POSTPARTUM DEPRESSION
     Dosage: 10MG 1X DAILY PO
     Route: 048
     Dates: start: 20090916, end: 20091003

REACTIONS (3)
  - AUTOIMMUNE HEPATITIS [None]
  - AUTOIMMUNE PANCREATITIS [None]
  - CHOLELITHIASIS [None]
